FAERS Safety Report 7756299-7 (Version None)
Quarter: 2011Q3

REPORT INFORMATION
  Report Type: 
  Country: None (occurrence: None)
  Receive Date: 20110916
  Receipt Date: 20110913
  Transmission Date: 20111222
  Serious: Yes (Hospitalization)
  Sender: FDA-Public Use
  Company Number: DE-ROCHE-710671

PATIENT
  Sex: Female
  Weight: 99 kg

DRUGS (6)
  1. DOCETAXEL [Suspect]
     Dosage: LAST DOSE PROIR TO SAE : 22 APRIL 2010, TOTAL DOSE: 203 MG, DOSE FORM: VIALS
     Route: 042
     Dates: start: 20100304
  2. FLUOROURACIL [Suspect]
     Dosage: FORM: VIALS. TOTAL DOSE: 1212 MG. LAST DOSE PRIOR TO SAE WAS ON 04 JUNE2010
     Route: 042
     Dates: start: 20100314
  3. EPIRUBICIN [Suspect]
     Dosage: LAST DOSE PRIOR TOSAE 04 JUL 2010. TOATL DOSE : 182 MG
     Route: 042
     Dates: start: 20100314
  4. CYCLOPHOSPHAMIDE [Suspect]
     Dosage: TOATL DOSE : 1212 MGLAST DOSE PRIOR TO SAE : 04 JUNE 2010.  FORM : VIALS.
     Route: 042
     Dates: start: 20100314
  5. TRASTUZUMAB [Suspect]
     Dosage: FORM: VIALS. LOADING DOSE.
     Route: 042
     Dates: start: 20100311
  6. TRASTUZUMAB [Suspect]
     Dosage: LAST DOSE PROIR TO SAE : 22 APRIL 2010. MAINTENANCE DOSE
     Route: 042
     Dates: start: 20100401

REACTIONS (1)
  - GENERAL PHYSICAL HEALTH DETERIORATION [None]
